FAERS Safety Report 21935330 (Version 3)
Quarter: 2024Q1

REPORT INFORMATION
  Report Type: Spontaneous
  Country: US (occurrence: US)
  Receive Date: 20230201
  Receipt Date: 20240105
  Transmission Date: 20240409
  Serious: No
  Sender: FDA-Public Use
  Company Number: US-PFIZER INC-PV202200118117

PATIENT
  Age: 12 Year
  Sex: Male
  Weight: 30.4 kg

DRUGS (2)
  1. GENOTROPIN [Suspect]
     Active Substance: SOMATROPIN
     Indication: Growth hormone deficiency
     Dosage: 1.3 MG, DAILY [1.3 (ALTERNATE 1.2-1.4MG)]
     Route: 058
     Dates: start: 20220913
  2. GENOTROPIN [Suspect]
     Active Substance: SOMATROPIN
     Indication: Growth hormone deficiency
     Dosage: 1.3 MG, DAILY [1.3 (ALTERNATE 1.2-1.4MG)]
     Route: 058
     Dates: start: 20220913

REACTIONS (2)
  - Wrong device used [Unknown]
  - Overdose [Unknown]

NARRATIVE: CASE EVENT DATE: 20221001
